FAERS Safety Report 8455077-3 (Version None)
Quarter: 2012Q2

REPORT INFORMATION
  Report Type: 
  Country: None (occurrence: None)
  Receive Date: 20120615
  Receipt Date: 20120615
  Transmission Date: 20120825
  Serious: Yes (Other)
  Sender: FDA-Public Use
  Company Number: None

PATIENT
  Sex: Female

DRUGS (1)
  1. BRILINTA [Suspect]
     Indication: ACUTE CORONARY SYNDROME
     Dosage: 180 MG ORALLY
     Route: 048
     Dates: start: 20120501

REACTIONS (3)
  - HEADACHE [None]
  - NAUSEA [None]
  - EPISTAXIS [None]
